FAERS Safety Report 5853870-4 (Version None)
Quarter: 2008Q3

REPORT INFORMATION
  Report Type: 
  Country: None (occurrence: None)
  Receive Date: 20080822
  Receipt Date: 20080820
  Transmission Date: 20090109
  Serious: Yes (Hospitalization, Disabling)
  Sender: FDA-Public Use
  Company Number: A0699122A

PATIENT
  Age: 45 Year
  Sex: Male
  Weight: 136.4 kg

DRUGS (3)
  1. AVANDIA [Suspect]
     Dosage: 2MG TWICE PER DAY
     Route: 048
     Dates: start: 20030801, end: 20080701
  2. AVANDAMET [Suspect]
     Dosage: 2MG TWICE PER DAY
     Route: 048
     Dates: start: 20021001, end: 20030801
  3. AMIODARONE [Concomitant]

REACTIONS (7)
  - ANXIETY [None]
  - CARDIAC FAILURE CONGESTIVE [None]
  - FLUID OVERLOAD [None]
  - FLUID RETENTION [None]
  - INJURY [None]
  - MYOCARDIAL INFARCTION [None]
  - SCAR [None]
